FAERS Safety Report 9879783 (Version 2)
Quarter: 2014Q1

REPORT INFORMATION
  Report Type: Spontaneous
  Country: BR (occurrence: BR)
  Receive Date: 20140206
  Receipt Date: 20140210
  Transmission Date: 20141002
  Serious: Yes (Other)
  Sender: FDA-Public Use
  Company Number: PHHY2013BR155456

PATIENT
  Sex: Male

DRUGS (2)
  1. EXELON [Suspect]
     Dosage: UNK
  2. HALDOL [Suspect]
     Dosage: UNK

REACTIONS (1)
  - Tardive dyskinesia [Recovered/Resolved]
